FAERS Safety Report 13384384 (Version 1)
Quarter: 2017Q1

REPORT INFORMATION
  Report Type: Spontaneous
  Country: LU (occurrence: LU)
  Receive Date: 20170329
  Receipt Date: 20170329
  Transmission Date: 20170429
  Serious: Yes (Death)
  Sender: FDA-Public Use
  Company Number: LU-BAYER-2017-053946

PATIENT
  Sex: Male

DRUGS (2)
  1. CIPROXINE 500 MG [Suspect]
     Active Substance: CIPROFLOXACIN
     Indication: PROSTATE INFECTION
  2. CIPROXINE 500 MG [Suspect]
     Active Substance: CIPROFLOXACIN
     Indication: CYSTITIS

REACTIONS (3)
  - Anxiety [Fatal]
  - Psychotic disorder [Fatal]
  - Nosophobia [Fatal]
